FAERS Safety Report 9656428 (Version 3)
Quarter: 2013Q4

REPORT INFORMATION
  Report Type: Spontaneous
  Country: IT (occurrence: IT)
  Receive Date: 20131030
  Receipt Date: 20131114
  Transmission Date: 20140711
  Serious: Yes (Other)
  Sender: FDA-Public Use
  Company Number: IT-ROCHE-1295641

PATIENT
  Age: 60 Year
  Sex: Female

DRUGS (7)
  1. ROACTEMRA [Suspect]
     Indication: RHEUMATOID ARTHRITIS
     Route: 042
     Dates: start: 20130501, end: 20130612
  2. NICOZID [Suspect]
     Indication: LATENT TUBERCULOSIS
     Route: 048
     Dates: start: 20130201
  3. MEDROL [Concomitant]
     Indication: RHEUMATOID ARTHRITIS
  4. CARDIOASPIRIN [Concomitant]
     Indication: PLATELET AGGREGATION INHIBITION
  5. BONVIVA [Concomitant]
  6. DIBASE [Concomitant]
  7. NORVASC [Concomitant]
     Indication: HYPERTENSION

REACTIONS (2)
  - Hypertransaminasaemia [Recovering/Resolving]
  - Gamma-glutamyltransferase increased [Recovering/Resolving]
